FAERS Safety Report 23100264 (Version 1)
Quarter: 2023Q4

REPORT INFORMATION
  Report Type: Spontaneous
  Country: US (occurrence: None)
  Receive Date: 20231020
  Receipt Date: 20231020
  Transmission Date: 20240110
  Serious: Yes (Hospitalization)
  Sender: FDA-Public Use
  Company Number: None

PATIENT
  Age: 46 Year
  Sex: Female
  Weight: 91 kg

DRUGS (4)
  1. HYDROXYZINE HYDROCHLORIDE [Suspect]
     Active Substance: HYDROXYZINE HYDROCHLORIDE
     Dosage: FREQUENCY : AT BEDTIME;?
     Route: 048
     Dates: start: 20230203, end: 20230309
  2. GABAPENTIN [Suspect]
     Active Substance: GABAPENTIN
     Dosage: FREQUENCY : AT BEDTIME;?
     Route: 048
     Dates: start: 20210616, end: 20230309
  3. MELATONIN [Suspect]
     Active Substance: MELATONIN
  4. VALERIAN [Suspect]
     Active Substance: VALERIAN

REACTIONS (2)
  - Intentional overdose [None]
  - Suicide attempt [None]

NARRATIVE: CASE EVENT DATE: 20230208
